FAERS Safety Report 11184536 (Version 1)
Quarter: 2015Q2

REPORT INFORMATION
  Report Type: Spontaneous
  Country: JP (occurrence: JP)
  Receive Date: 20150612
  Receipt Date: 20150612
  Transmission Date: 20150821
  Serious: Yes (Other)
  Sender: FDA-Public Use
  Company Number: JP-BAYER-2015-233060

PATIENT
  Age: 50 Year
  Sex: Male

DRUGS (4)
  1. NITOROL [Concomitant]
     Active Substance: ISOSORBIDE DINITRATE
     Indication: ANGINA PECTORIS
     Route: 048
  2. ADALAT-L [Suspect]
     Active Substance: NIFEDIPINE
     Indication: HYPERTENSION
  3. HERBESSER [Concomitant]
     Active Substance: DILTIAZEM HYDROCHLORIDE
     Indication: ANGINA PECTORIS
     Route: 048
  4. ADALAT-L [Suspect]
     Active Substance: NIFEDIPINE
     Indication: ANGINA PECTORIS
     Dosage: 20 MG, BID
     Route: 048
     Dates: start: 20010901, end: 20090120

REACTIONS (4)
  - Periodontitis [Recovered/Resolved]
  - Gingival hyperplasia [Recovered/Resolved]
  - Periodontitis [Recovered/Resolved]
  - Gingival hyperplasia [Recovered/Resolved]

NARRATIVE: CASE EVENT DATE: 20020521
